FAERS Safety Report 5402987-7 (Version None)
Quarter: 2007Q3

REPORT INFORMATION
  Report Type: 
  Country: None (occurrence: None)
  Receive Date: 20070801
  Receipt Date: 20070717
  Transmission Date: 20080115
  Serious: Yes (Other)
  Sender: FDA-Public Use
  Company Number: BR-GENENTECH-245361

PATIENT
  Age: 40 Year

DRUGS (2)
  1. AVASTIN [Suspect]
     Indication: GASTROINTESTINAL CARCINOMA
     Dosage: 25 MG/ML, UNK
     Dates: start: 20070528
  2. CHEMOTHERAPY NOS [Concomitant]
     Indication: GASTROINTESTINAL CARCINOMA
     Dates: start: 20070528

REACTIONS (1)
  - PRIAPISM [None]
